FAERS Safety Report 5588393-3 (Version None)
Quarter: 2008Q1

REPORT INFORMATION
  Report Type: 
  Country: None (occurrence: None)
  Receive Date: 20080111
  Receipt Date: 20071106
  Transmission Date: 20080703
  Serious: No
  Sender: FDA-Public Use
  Company Number: A0691749A

PATIENT
  Age: 49 Year
  Sex: Female

DRUGS (4)
  1. TYKERB [Suspect]
     Indication: BREAST CANCER
     Dosage: 1250MG PER DAY
     Route: 048
     Dates: start: 20071102
  2. KEPPRA [Concomitant]
  3. DEXAMETHASONE [Concomitant]
  4. OXYCODONE [Concomitant]

REACTIONS (2)
  - BURSITIS [None]
  - JOINT WARMTH [None]
